FAERS Safety Report 5812693-2 (Version None)
Quarter: 2008Q3

REPORT INFORMATION
  Report Type: 
  Country: None (occurrence: None)
  Receive Date: 20080714
  Receipt Date: 20080714
  Transmission Date: 20090109
  Serious: Yes (Other)
  Sender: FDA-Public Use
  Company Number: None

PATIENT
  Age: 30 Year
  Sex: Male
  Weight: 111.1313 kg

DRUGS (1)
  1. METOPROLOL SUCCINATE [Suspect]
     Indication: PALPITATIONS
     Dosage: 1 DAILY PO
     Route: 048
     Dates: start: 20080704, end: 20080709

REACTIONS (6)
  - ANXIETY [None]
  - DEPRESSION [None]
  - NAUSEA [None]
  - PAIN IN EXTREMITY [None]
  - SINUS HEADACHE [None]
  - VISION BLURRED [None]
